FAERS Safety Report 5272708-X (Version None)
Quarter: 2007Q1

REPORT INFORMATION
  Report Type: 
  Country: None (occurrence: None)
  Receive Date: 20070316
  Receipt Date: 20070301
  Transmission Date: 20070707
  Serious: Yes (Hospitalization)
  Sender: FDA-Public Use
  Company Number: S07-FRA-01135-01

PATIENT
  Age: 80 Year
  Sex: Female

DRUGS (6)
  1. EBIXA (MEMANTINE HYDROCHLORIDE) [Suspect]
     Dosage: 10 MG BID PO
     Route: 048
     Dates: end: 20061107
  2. EQUANIL [Suspect]
     Dosage: 400 MG QD PO
     Route: 048
     Dates: start: 20061107, end: 20061114
  3. CLONAZEPAM [Suspect]
     Dosage: 2 MG QD PO
     Route: 048
     Dates: end: 20061106
  4. CLONAZEPAM [Suspect]
     Dosage: 1 MG QD PO
     Route: 048
     Dates: start: 20061107, end: 20061114
  5. PROZAC [Suspect]
     Dosage: 1 QD PO
     Route: 048
     Dates: end: 20061107
  6. ARICEPT [Suspect]
     Dosage: 10 MG QD PO
     Route: 048
     Dates: end: 20061114

REACTIONS (12)
  - APHASIA [None]
  - BRONCHITIS [None]
  - COORDINATION ABNORMAL [None]
  - CREATININE RENAL CLEARANCE DECREASED [None]
  - DEHYDRATION [None]
  - DYSARTHRIA [None]
  - ECCHYMOSIS [None]
  - FAECALOMA [None]
  - FALL [None]
  - HYPERTONIA [None]
  - LEUKOARAIOSIS [None]
  - SOMNOLENCE [None]
